FAERS Safety Report 10389010 (Version 1)
Quarter: 2014Q3

REPORT INFORMATION
  Report Type: Spontaneous
  Country: US (occurrence: None)
  Receive Date: 20140812
  Receipt Date: 20140812
  Transmission Date: 20150326
  Serious: Yes (Hospitalization)
  Sender: FDA-Public Use
  Company Number: 1437378

PATIENT
  Age: 23 Year
  Sex: Male

DRUGS (10)
  1. RISPERIDONE. [Concomitant]
     Active Substance: RISPERIDONE
  2. HALOPERIDOL. [Concomitant]
     Active Substance: HALOPERIDOL
  3. LITHIUM [Suspect]
     Active Substance: LITHIUM CARBONATE
     Indication: SCHIZOAFFECTIVE DISORDER
     Route: 048
  4. PALIPERIDONE [Concomitant]
     Active Substance: PALIPERIDONE
  5. QUITIEPINE [Concomitant]
  6. CLONAZEPAM. [Concomitant]
     Active Substance: CLONAZEPAM
  7. ZIPRASIDONE [Suspect]
     Active Substance: ZIPRASIDONE
     Indication: SCHIZOAFFECTIVE DISORDER
     Route: 048
  8. BENZTROPINE [Concomitant]
     Active Substance: BENZTROPINE
  9. OLANZAPINE. [Concomitant]
     Active Substance: OLANZAPINE
  10. VALPROATE [Concomitant]
     Active Substance: VALPROATE SODIUM

REACTIONS (11)
  - Hallucination, auditory [None]
  - Back pain [None]
  - Dyspnoea [None]
  - Rhabdomyolysis [None]
  - Treatment noncompliance [None]
  - Somnolence [None]
  - Abdominal pain [None]
  - Fatigue [None]
  - Alanine aminotransferase increased [None]
  - Tachypnoea [None]
  - Pain [None]
